FAERS Safety Report 14559086 (Version 9)
Quarter: 2018Q2

REPORT INFORMATION
  Report Type: Report from Study
  Country: US (occurrence: US)
  Receive Date: 20180221
  Receipt Date: 20180614
  Transmission Date: 20180711
  Serious: Yes (Hospitalization)
  Sender: FDA-Public Use
  Company Number: US-ACTELION-A-US2017-164987

PATIENT
  Age: 69 Year
  Sex: Female
  Weight: 63.49 kg

DRUGS (9)
  1. VELETRI [Suspect]
     Active Substance: EPOPROSTENOL
     Dosage: 10.5 NG/KG, PER MIN
     Route: 042
  2. VELETRI [Suspect]
     Active Substance: EPOPROSTENOL
     Dosage: 28.98 NG/KG, PER MIN
     Route: 042
  3. ADCIRCA [Concomitant]
     Active Substance: TADALAFIL
  4. LETAIRIS [Concomitant]
     Active Substance: AMBRISENTAN
  5. VELETRI [Suspect]
     Active Substance: EPOPROSTENOL
     Dosage: UNK, 60 ML/24 HRS
     Route: 042
  6. CIALIS [Concomitant]
     Active Substance: TADALAFIL
     Dosage: UNK
     Dates: start: 20171223
  7. VELETRI [Suspect]
     Active Substance: EPOPROSTENOL
     Indication: PULMONARY ARTERIAL HYPERTENSION
     Dosage: 11.02 NG/KG, PER MIN
     Route: 042
  8. DILTIAZEM. [Concomitant]
     Active Substance: DILTIAZEM
  9. VELETRI [Suspect]
     Active Substance: EPOPROSTENOL
     Dosage: 18.42 NG/KG, PER MIN
     Route: 042

REACTIONS (20)
  - Hypersensitivity [Unknown]
  - Abdominal pain upper [Unknown]
  - Hypoxia [Unknown]
  - Angina pectoris [Unknown]
  - Productive cough [Unknown]
  - Pulmonary arterial hypertension [Unknown]
  - Catheter site inflammation [Unknown]
  - Sinusitis [Unknown]
  - Fluid overload [Unknown]
  - Sinus congestion [Unknown]
  - Dyspnoea [Unknown]
  - Oral candidiasis [Unknown]
  - Pneumonia [Unknown]
  - Chest pain [Unknown]
  - Ear discomfort [Unknown]
  - Catheter site pruritus [Unknown]
  - Rash generalised [Unknown]
  - Headache [Unknown]
  - Catheter site rash [Unknown]
  - Rash pruritic [Unknown]

NARRATIVE: CASE EVENT DATE: 201803
